FAERS Safety Report 13030832 (Version 1)
Quarter: 2016Q4

REPORT INFORMATION
  Report Type: Spontaneous
  Country: US (occurrence: US)
  Receive Date: 20161215
  Receipt Date: 20161215
  Transmission Date: 20170207
  Serious: No
  Sender: FDA-Public Use
  Company Number: US-BAUSCH-BL-2016-020910

PATIENT
  Age: 19 Year
  Sex: Female

DRUGS (1)
  1. APRISO [Suspect]
     Active Substance: MESALAMINE
     Indication: PRODUCT USED FOR UNKNOWN INDICATION
     Route: 065
     Dates: start: 201412

REACTIONS (3)
  - Condition aggravated [Not Recovered/Not Resolved]
  - Ulcer [Not Recovered/Not Resolved]
  - Mucous stools [Recovered/Resolved]

NARRATIVE: CASE EVENT DATE: 20160802
